FAERS Safety Report 16336107 (Version 1)
Quarter: 2019Q2

REPORT INFORMATION
  Report Type: Spontaneous
  Country: DK (occurrence: DK)
  Receive Date: 20190521
  Receipt Date: 20190521
  Transmission Date: 20190711
  Serious: Yes (Other)
  Sender: FDA-Public Use
  Company Number: DK-ACCORD-128267

PATIENT
  Age: 23 Year
  Sex: Male

DRUGS (2)
  1. NIZORAL [Concomitant]
     Active Substance: KETOCONAZOLE
     Indication: SKIN DISORDER
     Dosage: STRENGTH: 2%. DOSE: USED 2 TIMES PER WEEK.
     Route: 003
     Dates: start: 20160728
  2. SERTRALINE ACCORD [Suspect]
     Active Substance: SERTRALINE HYDROCHLORIDE
     Indication: DEPRESSION
     Dosage: STRENGTH: 100 MG.
     Route: 048
     Dates: start: 2018, end: 20190206

REACTIONS (6)
  - Muscle fatigue [Recovered/Resolved]
  - Rhabdomyolysis [Recovered/Resolved]
  - Myalgia [Recovered/Resolved]
  - Alanine aminotransferase increased [Recovered/Resolved]
  - Blood creatine phosphokinase increased [Recovered/Resolved]
  - Blood lactate dehydrogenase increased [Recovered/Resolved]

NARRATIVE: CASE EVENT DATE: 201902
